FAERS Safety Report 6369040-X (Version None)
Quarter: 2009Q3

REPORT INFORMATION
  Report Type: 
  Country: None (occurrence: None)
  Receive Date: 20090922
  Receipt Date: 20090908
  Transmission Date: 20100115
  Serious: Yes (Other)
  Sender: FDA-Public Use
  Company Number: PHHY2009BR38308

PATIENT
  Sex: Female
  Weight: 48 kg

DRUGS (4)
  1. FEMARA [Suspect]
     Indication: BREAST CANCER
     Dosage: 2.5 MG DAILY
     Route: 048
  2. TAMOXIFEN CITRATE [Concomitant]
  3. BUSCOPAN [Concomitant]
     Dosage: 40 DROPS
  4. LUFTAL [Concomitant]
     Dosage: 100 DROPS

REACTIONS (14)
  - ABDOMINAL PAIN [None]
  - BONE PAIN [None]
  - CONFUSIONAL STATE [None]
  - DEPRESSION [None]
  - DIZZINESS [None]
  - HEADACHE [None]
  - HYPOREFLEXIA [None]
  - HYPOTENSION [None]
  - MEMORY IMPAIRMENT [None]
  - MOOD ALTERED [None]
  - NERVOUSNESS [None]
  - PAIN [None]
  - TREMOR [None]
  - VISUAL IMPAIRMENT [None]
